FAERS Safety Report 5393602-X (Version None)
Quarter: 2007Q3

REPORT INFORMATION
  Report Type: 
  Country: None (occurrence: None)
  Receive Date: 20070723
  Receipt Date: 20060920
  Transmission Date: 20080115
  Serious: No
  Sender: FDA-Public Use
  Company Number: A0620880A

PATIENT
  Age: 74 Year
  Sex: Female

DRUGS (9)
  1. AVANDIA [Suspect]
     Dosage: 8MG PER DAY
     Route: 048
     Dates: start: 20060501
  2. COUMADIN [Concomitant]
  3. TRENTAL [Concomitant]
  4. SECTRAL [Concomitant]
  5. LIPITOR [Concomitant]
  6. FORTAMET [Concomitant]
  7. HYTRIN [Concomitant]
  8. HYDROCHLOROTHIAZIDE [Concomitant]
  9. AMARYL [Concomitant]

REACTIONS (2)
  - OEDEMA PERIPHERAL [None]
  - SKIN WARM [None]
